FAERS Safety Report 19143503 (Version 12)
Quarter: 2025Q3

REPORT INFORMATION
  Report Type: Spontaneous
  Country: JP (occurrence: JP)
  Receive Date: 20210415
  Receipt Date: 20250704
  Transmission Date: 20251020
  Serious: Yes (Death, Hospitalization, Other)
  Sender: BRISTOL-MYERS SQUIBB COMPANY
  Company Number: JP-BRISTOL-MYERS SQUIBB COMPANY-BMS-2021-036279

PATIENT
  Age: 70 Year
  Sex: Male
  Weight: 62.7 kg

DRUGS (10)
  1. YERVOY [Suspect]
     Active Substance: IPILIMUMAB
     Indication: Non-small cell lung cancer recurrent
     Route: 041
     Dates: start: 20210310, end: 20210331
  2. OPDIVO [Suspect]
     Active Substance: NIVOLUMAB
     Indication: Non-small cell lung cancer recurrent
     Route: 041
     Dates: start: 20210310, end: 20210331
  3. PACLITAXEL [Suspect]
     Active Substance: PACLITAXEL
     Indication: Non-small cell lung cancer recurrent
     Dates: start: 20210310
  4. PACLITAXEL [Suspect]
     Active Substance: PACLITAXEL
     Dates: start: 20210805
  5. CARBOPLATIN [Suspect]
     Active Substance: CARBOPLATIN
     Indication: Non-small cell lung cancer recurrent
     Dates: start: 20210310
  6. CARBOPLATIN [Suspect]
     Active Substance: CARBOPLATIN
     Dates: start: 20210805
  7. PACLITAXEL [Suspect]
     Active Substance: PACLITAXEL
     Indication: Non-small cell lung cancer recurrent
     Dates: start: 20210805
  8. CLOPIDOGREL [Concomitant]
     Active Substance: CLOPIDOGREL BISULFATE
     Indication: Product used for unknown indication
     Route: 048
  9. DIPYRIDAMOLE [Concomitant]
     Active Substance: DIPYRIDAMOLE
     Indication: Product used for unknown indication
     Route: 048
  10. TRELEGY ELLIPTA [Concomitant]
     Active Substance: FLUTICASONE FUROATE\UMECLIDINIUM BROMIDE\VILANTEROL TRIFENATATE
     Indication: Chronic obstructive pulmonary disease

REACTIONS (12)
  - Non-small cell lung cancer [Fatal]
  - Systemic inflammatory response syndrome [Recovered/Resolved]
  - Neutrophil count decreased [Unknown]
  - Immune-mediated dermatitis [Unknown]
  - Weight decreased [Unknown]
  - Thyroid disorder [Unknown]
  - White blood cell count decreased [Unknown]
  - Secondary adrenocortical insufficiency [Unknown]
  - Immune-mediated adverse reaction [Unknown]
  - Cytokine release syndrome [Unknown]
  - Infusion related reaction [Unknown]
  - Immune-mediated lung disease [Unknown]

NARRATIVE: CASE EVENT DATE: 20210320
